FAERS Safety Report 5644281-5 (Version None)
Quarter: 2008Q1

REPORT INFORMATION
  Report Type: 
  Country: None (occurrence: None)
  Receive Date: 20080229
  Receipt Date: 20080226
  Transmission Date: 20080703
  Serious: Yes (Other)
  Sender: FDA-Public Use
  Company Number: PHNU2008DE01125

PATIENT
  Sex: Female

DRUGS (3)
  1. RASILEZ [Suspect]
     Indication: HYPERTENSION
     Dates: start: 20070101
  2. ACE INHIBITOR NOS [Concomitant]
     Indication: HYPERTENSION
     Dates: start: 20070101
  3. ANGIOTENSIN II ANTAGONISTS [Concomitant]
     Indication: HYPERTENSION
     Dates: start: 20070101

REACTIONS (3)
  - ACUTE PRERENAL FAILURE [None]
  - CARDIOVASCULAR INSUFFICIENCY [None]
  - HYPOTENSION [None]
